FAERS Safety Report 7479055-6 (Version None)
Quarter: 2011Q2

REPORT INFORMATION
  Report Type: 
  Country: None (occurrence: None)
  Receive Date: 20110511
  Receipt Date: 20110511
  Transmission Date: 20111010
  Serious: No
  Sender: FDA-Public Use
  Company Number: None

PATIENT
  Sex: Female
  Weight: 58.9676 kg

DRUGS (1)
  1. FENTANYL-100 [Suspect]
     Indication: BACK DISORDER

REACTIONS (4)
  - APPLICATION SITE RASH [None]
  - REACTION TO DRUG EXCIPIENTS [None]
  - RASH ERYTHEMATOUS [None]
  - PRURITUS [None]
